FAERS Safety Report 6354892-X (Version None)
Quarter: 2009Q3

REPORT INFORMATION
  Report Type: 
  Country: None (occurrence: None)
  Receive Date: 20090914
  Receipt Date: 20090903
  Transmission Date: 20100115
  Serious: Yes (Life-Threatening, Hospitalization, Disabling, Other)
  Sender: FDA-Public Use
  Company Number: US-MERCK-0907USA05708

PATIENT
  Age: 38 Year
  Sex: Female
  Weight: 97 kg

DRUGS (8)
  1. JANUVIA [Suspect]
     Indication: TYPE 2 DIABETES MELLITUS
     Route: 048
     Dates: start: 20090401, end: 20090601
  2. TRICOR [Concomitant]
     Route: 065
  3. METFORMIN [Concomitant]
     Route: 065
  4. ACTOS [Concomitant]
     Route: 065
  5. ALLEGRA D 24 HOUR [Concomitant]
     Route: 065
  6. CYANOCOBALAMIN [Concomitant]
     Route: 065
  7. MENEST [Concomitant]
     Route: 065
  8. FLONASE [Concomitant]
     Route: 065

REACTIONS (19)
  - ADVERSE EVENT [None]
  - ANGIOEDEMA [None]
  - BLOOD GLUCOSE INCREASED [None]
  - DIABETES MELLITUS [None]
  - DYSPNOEA [None]
  - FOOD ALLERGY [None]
  - HYPERCHOLESTEROLAEMIA [None]
  - HYPERGLYCAEMIA [None]
  - HYPERSENSITIVITY [None]
  - INCREASED APPETITE [None]
  - IRRITABILITY [None]
  - LEUKOCYTOSIS [None]
  - NERVOUSNESS [None]
  - PARAESTHESIA [None]
  - PARAESTHESIA ORAL [None]
  - STRIDOR [None]
  - SWOLLEN TONGUE [None]
  - URTICARIA [None]
  - WEIGHT INCREASED [None]
